FAERS Safety Report 8515239-3 (Version None)
Quarter: 2012Q3

REPORT INFORMATION
  Report Type: 
  Country: None (occurrence: None)
  Receive Date: 20120717
  Receipt Date: 20120712
  Transmission Date: 20120928
  Serious: No
  Sender: FDA-Public Use
  Company Number: US-AMGEN-USASP2011053413

PATIENT
  Age: 80 Year
  Sex: Female

DRUGS (2)
  1. PROMACTA [Concomitant]
     Dosage: UNK
  2. NPLATE [Suspect]
     Indication: IDIOPATHIC THROMBOCYTOPENIC PURPURA
     Dosage: 50 MUG, UNK
     Dates: start: 20110727

REACTIONS (1)
  - DRUG DOSE OMISSION [None]
